FAERS Safety Report 10045223 (Version 1)
Quarter: 2014Q1

REPORT INFORMATION
  Report Type: Report from Study
  Country: AR (occurrence: AR)
  Receive Date: 20140328
  Receipt Date: 20140328
  Transmission Date: 20141002
  Serious: Yes (Hospitalization)
  Sender: FDA-Public Use
  Company Number: AR-BRISTOL-MYERS SQUIBB COMPANY-20553251

PATIENT
  Age: 37 Year
  Sex: Male

DRUGS (1)
  1. YERVOY [Suspect]
     Dosage: INTERRUPTED ON 18MAR2014

REACTIONS (3)
  - Vomiting [Recovering/Resolving]
  - Liver disorder [Recovering/Resolving]
  - Gallbladder disorder [Recovering/Resolving]
